FAERS Safety Report 5366906-4 (Version None)
Quarter: 2007Q2

REPORT INFORMATION
  Report Type: 
  Country: None (occurrence: None)
  Receive Date: 20070622
  Receipt Date: 20070323
  Transmission Date: 20071010
  Serious: No
  Sender: FDA-Public Use
  Company Number: US-ASTRAZENECA-2007UW06008

PATIENT
  Age: 13 Year
  Sex: Female
  Weight: 63.5 kg

DRUGS (3)
  1. RHINOCORT [Suspect]
     Indication: HYPERSENSITIVITY
     Route: 045
     Dates: start: 20070220, end: 20070222
  2. LORATADINE [Suspect]
     Dates: start: 20070220
  3. SINGULAIR [Concomitant]

REACTIONS (5)
  - ABDOMINAL PAIN UPPER [None]
  - BACK PAIN [None]
  - COUGH [None]
  - THROAT IRRITATION [None]
  - VOMITING [None]
